FAERS Safety Report 19916995 (Version 1)
Quarter: 2021Q4

REPORT INFORMATION
  Report Type: Spontaneous
  Country: DE (occurrence: DE)
  Receive Date: 20211004
  Receipt Date: 20211004
  Transmission Date: 20220303
  Serious: Yes (Hospitalization, Other)
  Sender: FDA-Public Use
  Company Number: DE-KRKA-DE2021K07393SPO

PATIENT
  Age: 20 Year
  Sex: Male

DRUGS (8)
  1. CANDESARTAN [Suspect]
     Active Substance: CANDESARTAN
     Indication: Product used for unknown indication
     Dosage: 48 MILLIGRAM, QD (48 MG, PER DAY)
     Route: 048
     Dates: start: 20210525, end: 20210525
  2. BISOPROLOL [Suspect]
     Active Substance: BISOPROLOL
     Indication: Product used for unknown indication
     Dosage: 3.75 MILLIGRAM, QD (4 X 3.75 MG, PER DAY)
     Route: 048
     Dates: start: 20210525, end: 20210525
  3. TILIDINE [Suspect]
     Active Substance: TILIDINE
     Indication: Product used for unknown indication
     Dosage: 600 MILLIGRAM, QD ((200 MG + 400 MG, PER DAY))
     Route: 048
     Dates: start: 20210525, end: 20210525
  4. BROMAZEPAM [Suspect]
     Active Substance: BROMAZEPAM
     Indication: Product used for unknown indication
     Dosage: 24 MILLIGRAM, QD (24 MG, PER DAY)
     Route: 048
     Dates: start: 20210525, end: 20210525
  5. CLONAZEPAM [Suspect]
     Active Substance: CLONAZEPAM
     Indication: Product used for unknown indication
     Dosage: 21 MILLIGRAM, QD (21 MG, PER DAY)
     Route: 048
     Dates: start: 20210525, end: 20210525
  6. CARVEDILOL [Suspect]
     Active Substance: CARVEDILOL
     Indication: Product used for unknown indication
     Dosage: 12.5 MILLIGRAM, QD (12.5 MG, PER DAY)
     Route: 048
     Dates: start: 20210525, end: 20210525
  7. ALPRAZOLAM [Suspect]
     Active Substance: ALPRAZOLAM
     Indication: Product used for unknown indication
     Dosage: 17 MILLIGRAM, QD (17 MG, PER DAY)
     Route: 048
     Dates: start: 20210525, end: 20210525
  8. CODEINE [Suspect]
     Active Substance: CODEINE
     Indication: Product used for unknown indication
     Dosage: 120 MILLIGRAM, QD (120 MG, PER DAY)
     Route: 048
     Dates: start: 20210525, end: 20210525

REACTIONS (3)
  - Sinus bradycardia [Recovered/Resolved]
  - Drug abuse [Recovered/Resolved]
  - Acute kidney injury [Recovered/Resolved]

NARRATIVE: CASE EVENT DATE: 20210525
